FAERS Safety Report 18806500 (Version 2)
Quarter: 2021Q1

REPORT INFORMATION
  Report Type: Report from Study
  Country: US (occurrence: US)
  Receive Date: 20210129
  Receipt Date: 20210303
  Transmission Date: 20210419
  Serious: Yes (Hospitalization, Other)
  Sender: FDA-Public Use
  Company Number: US-INSMED, INC.-US-INS-21-00149

PATIENT
  Age: 63 Year
  Sex: Female

DRUGS (1)
  1. ARIKAYCE [Suspect]
     Active Substance: AMIKACIN
     Indication: PRODUCT USED FOR UNKNOWN INDICATION
     Route: 055
     Dates: start: 20210118, end: 20210118

REACTIONS (13)
  - Heart rate increased [Unknown]
  - Vomiting [Unknown]
  - Limb injury [Unknown]
  - Product package associated injury [Unknown]
  - Abdominal pain [Unknown]
  - Panic attack [Unknown]
  - Bronchospasm [Unknown]
  - Tinnitus [Unknown]
  - Dyspnoea [Unknown]
  - Underdose [Unknown]
  - Nausea [Unknown]
  - Oxygen saturation decreased [Unknown]
  - Product packaging difficult to open [Unknown]

NARRATIVE: CASE EVENT DATE: 20210118
